FAERS Safety Report 7554900-4 (Version None)
Quarter: 2011Q2

REPORT INFORMATION
  Report Type: 
  Country: None (occurrence: None)
  Receive Date: 20110617
  Receipt Date: 20110606
  Transmission Date: 20111010
  Serious: Yes (Other)
  Sender: FDA-Public Use
  Company Number: DE-BRISTOL-MYERS SQUIBB COMPANY-15808934

PATIENT
  Age: 73 Year
  Sex: Male

DRUGS (9)
  1. AMLODIPINE [Suspect]
  2. CAPTOPRIL [Suspect]
  3. ENTACAPONE [Suspect]
  4. PRAMIPEXOLE DIHYDROCHLORIDE [Suspect]
     Dosage: 0.35 TO 0.7 MG/DAY
  5. METOPROLOL TARTRATE [Suspect]
  6. RAMIPRIL [Suspect]
  7. FUROSEMIDE [Suspect]
  8. ASPIRIN [Suspect]
  9. L-DOPA [Suspect]
     Dosage: 3X100MG AND 100MG RETARD AT NIGHT

REACTIONS (1)
  - VON HIPPEL-LINDAU DISEASE [None]
